FAERS Safety Report 12351360 (Version 1)
Quarter: 2016Q2

REPORT INFORMATION
  Report Type: Spontaneous
  Country: None (occurrence: None)
  Receive Date: 20160509
  Receipt Date: 20160509
  Transmission Date: 20160815
  Serious: Yes (Other)
  Sender: FDA-Public Use
  Company Number: None

PATIENT
  Age: 62 Year
  Sex: Male
  Weight: 124.74 kg

DRUGS (2)
  1. ORBACTIV [Suspect]
     Active Substance: ORITAVANCIN
     Indication: OSTEOMYELITIS
     Route: 041
     Dates: start: 20160506, end: 20160506
  2. ORBACTIV [Suspect]
     Active Substance: ORITAVANCIN
     Indication: OFF LABEL USE
     Route: 041
     Dates: start: 20160506, end: 20160506

REACTIONS (3)
  - Rash erythematous [None]
  - Urticaria [None]
  - Infusion related reaction [None]

NARRATIVE: CASE EVENT DATE: 20160506
